FAERS Safety Report 9031432 (Version 2)
Quarter: 2013Q1

REPORT INFORMATION
  Report Type: Report from Study
  Country: ES (occurrence: ES)
  Receive Date: 20130124
  Receipt Date: 20130131
  Transmission Date: 20140127
  Serious: Yes (Hospitalization)
  Sender: FDA-Public Use
  Company Number: ES-PFIZER INC-2013029826

PATIENT
  Age: 72 Year
  Sex: Male
  Weight: 82 kg

DRUGS (11)
  1. IRINOTECAN HCL [Suspect]
     Indication: COLORECTAL CANCER METASTATIC
     Dosage: 331 MG, CYCLIC, 1 IN 15 DAYS
     Route: 042
     Dates: start: 20090311, end: 20090824
  2. FLUOROURACIL [Suspect]
     Indication: COLORECTAL CANCER METASTATIC
     Dosage: 736 MG, CYCLIC, 1 IN 15 DAYS
     Route: 040
     Dates: start: 20090311, end: 20090825
  3. FLUOROURACIL [Suspect]
     Dosage: 2208 MG, CYCLIC, 1 IN 15 DAYS
     Route: 041
     Dates: start: 20090311, end: 20090826
  4. FOLINIC ACID [Suspect]
     Indication: COLORECTAL CANCER METASTATIC
     Dosage: 368 MG, CYCLIC, 1 IN 15 DAYS
     Route: 042
     Dates: start: 20090311, end: 20090825
  5. BEVACIZUMAB [Suspect]
     Indication: COLORECTAL CANCER METASTATIC
     Dosage: 382 MG, CYCLIC, 1 IN 15 DAYS
     Route: 042
     Dates: start: 20090311, end: 20090824
  6. CO-DIOVAN [Concomitant]
     Indication: HYPERTENSION
     Dosage: 80/12.5 MG
     Route: 048
     Dates: start: 20080915
  7. OMEPRAZOLE [Concomitant]
     Indication: PROPHYLAXIS
     Dosage: 20 MG, 1X/DAY
     Route: 048
     Dates: start: 20080804
  8. BACTROBAN [Concomitant]
     Indication: STOMATITIS
     Dosage: 1 DF, 3X/DAY
     Route: 061
     Dates: start: 20090414
  9. GRANISETRON [Concomitant]
     Indication: PROPHYLAXIS OF NAUSEA AND VOMITING
     Dosage: 1 MG, 2X/DAY
     Route: 048
     Dates: start: 20090312, end: 20091016
  10. BOREA [Concomitant]
     Dosage: 160 MG, UNK
     Dates: start: 20081006
  11. PREGABALIN [Concomitant]
     Dosage: 75 MG, UNK
     Dates: start: 20090706

REACTIONS (1)
  - Anal abscess [Recovered/Resolved]
